FAERS Safety Report 7306649-0 (Version None)
Quarter: 2011Q1

REPORT INFORMATION
  Report Type: 
  Country: None (occurrence: None)
  Receive Date: 20110209
  Receipt Date: 20110127
  Transmission Date: 20110831
  Serious: Yes (Hospitalization, Other)
  Sender: FDA-Public Use
  Company Number: BR-001476

PATIENT
  Sex: Male
  Weight: 14 kg

DRUGS (5)
  1. MULTI-VITAMINS [Concomitant]
  2. EBASTINE [Concomitant]
  3. NAGLAZYME [Suspect]
     Indication: MUCOPOLYSACCHARIDOSIS VI
     Dosage: (15 MG 1X/WEEK INTRAVENOUS DRIP)
     Route: 041
     Dates: start: 20100623
  4. FERROUS SULFATE TAB [Concomitant]
  5. VIT C [Concomitant]

REACTIONS (2)
  - UMBILICAL HERNIA [None]
  - INGUINAL HERNIA [None]
